FAERS Safety Report 9217286 (Version 1)
Quarter: 2013Q2

REPORT INFORMATION
  Report Type: Spontaneous
  Country: SI (occurrence: SI)
  Receive Date: 20130408
  Receipt Date: 20130408
  Transmission Date: 20140414
  Serious: Yes (Other)
  Sender: FDA-Public Use
  Company Number: SI-B.I. PHARMACEUTICALS,INC./RIDGEFIELD-2013-BI-09485YA

PATIENT
  Sex: Male

DRUGS (1)
  1. TAMSULOSINA [Suspect]
     Dosage: 0.4 MG
     Route: 048

REACTIONS (1)
  - Urinary retention [Unknown]
